FAERS Safety Report 9697841 (Version 2)
Quarter: 2014Q1

REPORT INFORMATION
  Report Type: Spontaneous
  Country: JP (occurrence: JP)
  Receive Date: 20131120
  Receipt Date: 20140206
  Transmission Date: 20141002
  Serious: No
  Sender: FDA-Public Use
  Company Number: JP-UCBSA-103527

PATIENT
  Age: 78 Year
  Sex: Male

DRUGS (9)
  1. E KEPPRA [Suspect]
     Indication: STATUS EPILEPTICUS
     Route: 048
     Dates: start: 20130828, end: 20131004
  2. PLETAAL OD [Concomitant]
     Dosage: DAILY DOSE: 100 MG
     Route: 048
     Dates: start: 20130828
  3. UNISIA [Concomitant]
     Dosage: DAILY DOSE: 1 DF
     Route: 048
     Dates: start: 20130828, end: 20131003
  4. UNISIA [Concomitant]
     Dosage: DAILY DOSE: 1 DF
     Route: 048
     Dates: start: 20130828, end: 20131003
  5. THYRADIN S [Concomitant]
     Dosage: DAILY DOSE: 62.5 ?G
     Route: 048
     Dates: start: 20130828, end: 20131003
  6. THYRADIN S [Concomitant]
     Dosage: DAILY DOSE: 100 ?G
     Route: 048
     Dates: start: 20131004
  7. JZOLOFT [Concomitant]
     Dosage: DAILY DOSE: 50 MG
     Route: 048
     Dates: start: 20130828
  8. SALUMOSIN [Concomitant]
     Dosage: DAILY DOSE: 10 MG
     Route: 048
     Dates: start: 20130828
  9. SELENICA R [Concomitant]
     Dosage: DAILY DOSE: 1200 MG
     Route: 048
     Dates: start: 20130828, end: 20131003

REACTIONS (1)
  - Thrombocytopenia [Recovered/Resolved]
